FAERS Safety Report 8413535-1 (Version None)
Quarter: 2012Q2

REPORT INFORMATION
  Report Type: 
  Country: None (occurrence: None)
  Receive Date: 20120605
  Receipt Date: 20120530
  Transmission Date: 20120825
  Serious: Yes (Hospitalization, Congenital Anomaly)
  Sender: FDA-Public Use
  Company Number: US-GLAXOSMITHKLINE-A0979894A

PATIENT
  Sex: Male

DRUGS (3)
  1. PAXIL [Suspect]
     Indication: MAJOR DEPRESSION
     Dosage: 20MG PER DAY
     Route: 064
     Dates: end: 20030101
  2. PAROXETINE HCL [Suspect]
     Indication: MAJOR DEPRESSION
     Dosage: 30MG PER DAY
     Route: 064
     Dates: start: 20030101, end: 20040101
  3. PREVACID [Concomitant]

REACTIONS (16)
  - AUTISM [None]
  - GENERALISED OEDEMA [None]
  - PULMONARY HAEMORRHAGE [None]
  - CONGENITAL INGUINAL HERNIA [None]
  - QUADRIPLEGIA [None]
  - CEREBRAL PALSY [None]
  - RENAL FAILURE ACUTE [None]
  - HYDROPS FOETALIS [None]
  - CORONARY ARTERY DILATATION [None]
  - STATUS EPILEPTICUS [None]
  - FOETAL EXPOSURE DURING PREGNANCY [None]
  - PATENT DUCTUS ARTERIOSUS [None]
  - MICROCEPHALY [None]
  - HYPERTROPHIC CARDIOMYOPATHY [None]
  - INTRAVENTRICULAR HAEMORRHAGE [None]
  - BLINDNESS [None]
